FAERS Safety Report 5545215-4 (Version None)
Quarter: 2007Q4

REPORT INFORMATION
  Report Type: 
  Country: None (occurrence: None)
  Receive Date: 20071121
  Receipt Date: 20061026
  Transmission Date: 20080405
  Serious: Yes (Other)
  Sender: FDA-Public Use
  Company Number: 2006133268

PATIENT
  Age: 62 Year
  Sex: Female
  Weight: 97.0698 kg

DRUGS (1)
  1. SINEQUAN [Suspect]
     Indication: NERVOUSNESS
     Dosage: 25 MG (25 MG, BID: EVERY DAY)
     Dates: start: 19870101

REACTIONS (1)
  - HYPERTENSION [None]
